FAERS Safety Report 7221522-4 (Version None)
Quarter: 2011Q1

REPORT INFORMATION
  Report Type: 
  Country: None (occurrence: None)
  Receive Date: 20110112
  Receipt Date: 20110107
  Transmission Date: 20110831
  Serious: Yes (Other)
  Sender: FDA-Public Use
  Company Number: PHHY2011CA01295

PATIENT
  Sex: Male

DRUGS (1)
  1. SANDOSTATIN LAR [Suspect]
     Indication: NEOPLASM
     Dosage: 20 MG, ONCE A MONTH
     Route: 030
     Dates: start: 20101115, end: 20110107

REACTIONS (2)
  - TERMINAL STATE [None]
  - PALLIATIVE CARE [None]
